FAERS Safety Report 8781991 (Version 2)
Quarter: 2012Q4

REPORT INFORMATION
  Report Type: 
  Country: US (occurrence: US)
  Receive Date: 20120913
  Receipt Date: 20121107
  Transmission Date: 20130627
  Serious: Yes (Other)
  Sender: FDA-Public Use
  Company Number: US-BAYER-2012-094607

PATIENT
  Age: 24 Year
  Sex: Female
  Weight: 60.77 kg

DRUGS (6)
  1. YAZ [Suspect]
     Indication: ACNE
     Dosage: UNK
     Dates: start: 20060601, end: 200610
  2. YAZ [Suspect]
     Indication: PREMENSTRUAL SYNDROME
  3. YASMIN [Suspect]
     Indication: ACNE
     Dosage: UNK
     Dates: start: 20060601, end: 200610
  4. YASMIN [Suspect]
     Indication: PREMENSTRUAL SYNDROME
  5. ASTHMA/BREATHING MEDICATIONS [Concomitant]
  6. NSAID^S [Concomitant]

REACTIONS (8)
  - Gallbladder disorder [None]
  - Pain [None]
  - Injury [None]
  - General physical health deterioration [None]
  - Anxiety [None]
  - Anhedonia [None]
  - Emotional distress [None]
  - Pain [None]
